FAERS Safety Report 12570562 (Version 1)
Quarter: 2016Q3

REPORT INFORMATION
  Report Type: Spontaneous
  Country: FR (occurrence: FR)
  Receive Date: 20160719
  Receipt Date: 20160719
  Transmission Date: 20161109
  Serious: Yes (Congenital Anomaly)
  Sender: FDA-Public Use
  Company Number: FR-ABBVIE-16P-056-1679047-00

PATIENT
  Age: 3 Year
  Sex: Male

DRUGS (1)
  1. DEPAKINE CHRONO [Suspect]
     Active Substance: VALPROATE SODIUM
     Indication: MATERNAL EXPOSURE TIMING UNSPECIFIED
     Route: 064

REACTIONS (3)
  - Dyspraxia [Not Recovered/Not Resolved]
  - Foetal exposure during pregnancy [Unknown]
  - Learning disorder [Not Recovered/Not Resolved]

NARRATIVE: CASE EVENT DATE: 2007
